FAERS Safety Report 5924476-3 (Version None)
Quarter: 2008Q4

REPORT INFORMATION
  Report Type: 
  Country: None (occurrence: None)
  Receive Date: 20081020
  Receipt Date: 20081009
  Transmission Date: 20090506
  Serious: Yes (Death, Hospitalization, Other)
  Sender: FDA-Public Use
  Company Number: DE-PFIZER INC-2008080618

PATIENT
  Sex: Male
  Weight: 81 kg

DRUGS (1)
  1. SUTENT [Suspect]
     Indication: GASTROINTESTINAL STROMAL TUMOUR
     Route: 048
     Dates: start: 20080501, end: 20080830

REACTIONS (4)
  - CARDIAC FAILURE [None]
  - CARDIOMYOPATHY [None]
  - HEPATIC CONGESTION [None]
  - MULTI-ORGAN FAILURE [None]
